FAERS Safety Report 15544985 (Version 1)
Quarter: 2018Q4

REPORT INFORMATION
  Report Type: Spontaneous
  Country: US (occurrence: US)
  Receive Date: 20181024
  Receipt Date: 20181024
  Transmission Date: 20190205
  Serious: No
  Sender: FDA-Public Use
  Company Number: US-009507513-1810USA009903

PATIENT
  Sex: Female

DRUGS (2)
  1. IRON (UNSPECIFIED) (+) MINERALS (UNSPECIFIED) (+) VITAMINS (UNSPECIFIE [Concomitant]
     Active Substance: IRON\MINERALS\VITAMINS
  2. FOLLISTIM [Suspect]
     Active Substance: FOLLITROPIN
     Indication: INFERTILITY FEMALE
     Dosage: 75 UNITS AS DIRECTED
     Route: 058
     Dates: start: 20180612

REACTIONS (1)
  - Headache [Unknown]

NARRATIVE: CASE EVENT DATE: 2018
